FAERS Safety Report 8504003-7 (Version None)
Quarter: 2012Q3

REPORT INFORMATION
  Report Type: 
  Country: None (occurrence: None)
  Receive Date: 20120711
  Receipt Date: 20120702
  Transmission Date: 20120928
  Serious: No
  Sender: FDA-Public Use
  Company Number: US-009507513-1207USA00139

PATIENT

DRUGS (3)
  1. BONIVA [Suspect]
  2. ACTONEL [Suspect]
  3. FOSAMAX [Suspect]
     Route: 048

REACTIONS (1)
  - DRUG INTOLERANCE [None]
